FAERS Safety Report 24638105 (Version 3)
Quarter: 2025Q3

REPORT INFORMATION
  Report Type: Spontaneous
  Country: EU (occurrence: EU)
  Receive Date: 20241119
  Receipt Date: 20250803
  Transmission Date: 20251021
  Serious: No
  Sender: ALEXION PHARMACEUTICALS
  Company Number: EU-ASTRAZENECA-202411GLO014146DK

PATIENT
  Age: 33 Year
  Sex: Female

DRUGS (2)
  1. QUETIAPINE FUMARATE [Suspect]
     Active Substance: QUETIAPINE FUMARATE
  2. TETRABENAZINE [Suspect]
     Active Substance: TETRABENAZINE
     Route: 065

REACTIONS (2)
  - Exposure during pregnancy [Unknown]
  - Treatment noncompliance [Unknown]
